FAERS Safety Report 8403125-9 (Version None)
Quarter: 2012Q2

REPORT INFORMATION
  Report Type: 
  Country: None (occurrence: None)
  Receive Date: 20120601
  Receipt Date: 20120522
  Transmission Date: 20120825
  Serious: Yes (Other)
  Sender: FDA-Public Use
  Company Number: DE-JNJFOC-20120518507

PATIENT

DRUGS (4)
  1. GEMCITABINE [Suspect]
     Indication: METASTATIC RENAL CELL CARCINOMA
     Dosage: OVER 1 HOUR
     Route: 042
  2. SORAFENIB [Suspect]
     Indication: METASTATIC RENAL CELL CARCINOMA
     Route: 048
  3. DOXORUBICIN HCL [Suspect]
     Indication: METASTATIC RENAL CELL CARCINOMA
     Route: 040
  4. GRANULOCYTE COLONY STIMULATING FACTOR [Suspect]
     Indication: METASTATIC RENAL CELL CARCINOMA
     Dosage: RECOMBINANT HUMAN GCSF
     Route: 058

REACTIONS (3)
  - OFF LABEL USE [None]
  - DIARRHOEA [None]
  - HYPERTENSION [None]
